FAERS Safety Report 17563503 (Version 2)
Quarter: 2020Q1

REPORT INFORMATION
  Report Type: Report from Study
  Country: None (occurrence: US)
  Receive Date: 20200319
  Receipt Date: 20200330
  Transmission Date: 20200409
  Serious: Yes (Hospitalization, Other)
  Sender: FDA-Public Use
  Company Number: US-ABBVIE-20P-163-3319334-00

PATIENT
  Sex: Female

DRUGS (1)
  1. IMBRUVICA [Suspect]
     Active Substance: IBRUTINIB
     Indication: NON-HODGKIN^S LYMPHOMA
     Route: 048
     Dates: start: 20191231, end: 20200327

REACTIONS (6)
  - Brain neoplasm [Unknown]
  - Balance disorder [Unknown]
  - Contusion [Unknown]
  - Upper limb fracture [Unknown]
  - Fall [Unknown]
  - Mobility decreased [Unknown]
